FAERS Safety Report 7408263-5 (Version None)
Quarter: 2011Q2

REPORT INFORMATION
  Report Type: 
  Country: None (occurrence: None)
  Receive Date: 20110412
  Receipt Date: 20110216
  Transmission Date: 20111010
  Serious: Yes (Hospitalization, Other)
  Sender: FDA-Public Use
  Company Number: US-BAYER-201018521NA

PATIENT
  Age: 36 Year
  Sex: Female
  Weight: 86.168 kg

DRUGS (7)
  1. FERROUS SULFATE TAB [Concomitant]
     Dosage: 325 MG, UNK
     Dates: start: 20070809
  2. ACETAMINOPHEN + COD. PHOSP. [Concomitant]
     Dosage: UNK
     Dates: start: 20070806
  3. YAZ [Suspect]
     Indication: CONTRACEPTION
     Dosage: UNK
     Route: 048
     Dates: start: 20060201, end: 20080104
  4. YASMIN [Suspect]
     Indication: CONTRACEPTION
     Dosage: UNK
     Route: 048
  5. AZITHROMYCIN [Concomitant]
     Dosage: 1 G, UNK
     Dates: start: 20070806
  6. IBUPROFEN [Concomitant]
     Dosage: 800 MG, UNK
  7. METHERGINE [Concomitant]
     Dosage: 0.2 MG, UNK
     Dates: start: 20070806

REACTIONS (3)
  - PULMONARY EMBOLISM [None]
  - DEEP VEIN THROMBOSIS [None]
  - PAIN [None]
